FAERS Safety Report 16126862 (Version 2)
Quarter: 2019Q2

REPORT INFORMATION
  Report Type: Report from Study
  Country: IT (occurrence: IT)
  Receive Date: 20190328
  Receipt Date: 20190528
  Transmission Date: 20190711
  Serious: Yes (Life-Threatening, Hospitalization)
  Sender: FDA-Public Use
  Company Number: IT-ACCORD-115598

PATIENT
  Age: 77 Year
  Sex: Female

DRUGS (3)
  1. PERJETA [Suspect]
     Active Substance: PERTUZUMAB
     Indication: METAPLASTIC BREAST CARCINOMA
     Dosage: STRENGTH: 420 MG
     Route: 042
     Dates: start: 20180117, end: 20180117
  2. HERCEPTIN [Suspect]
     Active Substance: TRASTUZUMAB
     Indication: METAPLASTIC BREAST CARCINOMA
     Dosage: STRENGTH: 600 MG
     Route: 058
     Dates: start: 20180117, end: 20180117
  3. DOCETAXEL ACCORD [Suspect]
     Active Substance: DOCETAXEL
     Indication: METAPLASTIC BREAST CARCINOMA
     Route: 042
     Dates: start: 20180117, end: 20180117

REACTIONS (1)
  - Mesenteric vascular occlusion [Recovered/Resolved]

NARRATIVE: CASE EVENT DATE: 20180127
